FAERS Safety Report 8305521-7 (Version None)
Quarter: 2012Q2

REPORT INFORMATION
  Report Type: 
  Country: None (occurrence: None)
  Receive Date: 20120423
  Receipt Date: 20120410
  Transmission Date: 20120825
  Serious: Yes (Other)
  Sender: FDA-Public Use
  Company Number: JP-GLAXOSMITHKLINE-B0795402A

PATIENT
  Sex: Female

DRUGS (9)
  1. METLIGINE [Concomitant]
     Dosage: 4MG PER DAY
     Route: 048
  2. LAMICTAL [Suspect]
     Indication: BIPOLAR DISORDER
     Dosage: 25MG PER DAY
     Route: 048
     Dates: start: 20120321, end: 20120405
  3. DIAZEPAM [Concomitant]
     Route: 048
  4. ZOLOFT [Concomitant]
     Dosage: 50MG PER DAY
     Route: 048
  5. GASMOTIN [Concomitant]
     Dosage: 10MG PER DAY
     Route: 048
  6. LITHIUM CARBONATE [Concomitant]
     Dosage: 400MG PER DAY
     Route: 048
  7. ALPRAZOLAM [Concomitant]
     Dosage: .8MG PER DAY
     Route: 048
  8. ROHYPNOL [Concomitant]
     Dosage: 1MG PER DAY
     Route: 048
  9. CEFAZOLIN SODIUM [Concomitant]
     Dosage: 3IUAX PER DAY
     Route: 048

REACTIONS (5)
  - RASH [None]
  - WHITE BLOOD CELL COUNT DECREASED [None]
  - EOSINOPHIL PERCENTAGE DECREASED [None]
  - PYREXIA [None]
  - GAMMA-GLUTAMYLTRANSFERASE DECREASED [None]
